FAERS Safety Report 22208895 (Version 2)
Quarter: 2023Q2

REPORT INFORMATION
  Report Type: Spontaneous
  Country: NO (occurrence: NO)
  Receive Date: 20230413
  Receipt Date: 20230428
  Transmission Date: 20230722
  Serious: Yes (Hospitalization)
  Sender: FDA-Public Use
  Company Number: NO-TEVA-2023-NO-2875678

PATIENT
  Age: 8 Decade
  Sex: Female

DRUGS (20)
  1. DONEPEZIL [Suspect]
     Active Substance: DONEPEZIL
     Indication: Dementia Alzheimer^s type
     Route: 065
  2. MEMANTINE [Suspect]
     Active Substance: MEMANTINE
     Indication: Hallucination, visual
     Route: 065
  3. QUETIAPINE [Suspect]
     Active Substance: QUETIAPINE
     Indication: Dementia with Lewy bodies
     Dosage: 12.5 MILLIGRAM DAILY; ONCE A DAY
     Route: 065
  4. RASAGILINE [Suspect]
     Active Substance: RASAGILINE
     Indication: Dementia with Lewy bodies
     Route: 065
  5. FLUPENTIXOL\MELITRACEN [Suspect]
     Active Substance: FLUPENTIXOL\MELITRACEN
     Indication: Panic attack
     Dosage: 21 MILLIGRAM DAILY; ONCE A DAY
     Route: 065
  6. FLUPENTIXOL\MELITRACEN [Suspect]
     Active Substance: FLUPENTIXOL\MELITRACEN
     Dosage: 10.5 MILLIGRAM DAILY; ONCE A DAY
     Route: 065
  7. BENSERAZIDE\LEVODOPA [Suspect]
     Active Substance: BENSERAZIDE\LEVODOPA
     Indication: Parkinsonism
     Dosage: IN 4 DOSES , 750 MG
     Route: 065
  8. BENSERAZIDE\LEVODOPA [Suspect]
     Active Substance: BENSERAZIDE\LEVODOPA
     Dosage: IN 4 DOSES , 625 MG
     Route: 065
  9. BENSERAZIDE\LEVODOPA [Suspect]
     Active Substance: BENSERAZIDE\LEVODOPA
     Dosage: IN 4 DOSES (AFTER REBOUND EFFECT) , 750 MG
     Route: 065
  10. LORAZEPAM [Suspect]
     Active Substance: LORAZEPAM
     Indication: Dementia with Lewy bodies
     Dosage: 1.5 MG
     Route: 065
  11. GABAPENTIN [Suspect]
     Active Substance: GABAPENTIN
     Indication: Dementia with Lewy bodies
     Dosage: 1200 MILLIGRAM DAILY; ONCE A DAY
     Route: 065
  12. VALPROIC ACID [Suspect]
     Active Substance: VALPROIC ACID
     Indication: Dementia with Lewy bodies
     Dosage: 200-400MG/DAY
     Route: 065
  13. GV-971 [Suspect]
     Active Substance: GV-971
     Indication: Panic attack
     Route: 065
  14. SERTRALINE [Concomitant]
     Active Substance: SERTRALINE HYDROCHLORIDE
     Indication: Panic attack
     Dosage: 50 MILLIGRAM DAILY; ONCE A DAY
     Route: 065
  15. MIRTAZAPINE [Concomitant]
     Active Substance: MIRTAZAPINE
     Indication: Panic attack
     Dosage: 15 MILLIGRAM DAILY; ONCE A DAY
     Route: 065
  16. RIVASTIGMINE [Concomitant]
     Active Substance: RIVASTIGMINE
     Indication: Discomfort
     Dosage: 9.5 MILLIGRAM DAILY;  ONCE A DAY
     Route: 062
  17. RIVASTIGMINE [Concomitant]
     Active Substance: RIVASTIGMINE
     Indication: Dyspepsia
  18. PRAMIPEXOLE [Concomitant]
     Active Substance: PRAMIPEXOLE
     Indication: Product used for unknown indication
     Dosage: .5 MILLIGRAM DAILY;  ONCE A DAY
     Route: 065
  19. ESTAZOLAM [Concomitant]
     Active Substance: ESTAZOLAM
     Indication: Product used for unknown indication
     Dosage: 1 MILLIGRAM DAILY;  ONCE A DAY
     Route: 065
  20. SELEGILINE [Concomitant]
     Active Substance: SELEGILINE
     Indication: Dementia with Lewy bodies
     Route: 065

REACTIONS (11)
  - Nervousness [Unknown]
  - Tremor [Unknown]
  - Dyspepsia [Unknown]
  - Discomfort [Unknown]
  - Fatigue [Unknown]
  - Somnolence [Unknown]
  - Anxiety [Unknown]
  - Panic attack [Unknown]
  - Rebound effect [Unknown]
  - Drug ineffective [Unknown]
  - Symptom masked [Unknown]
